FAERS Safety Report 21463579 (Version 1)
Quarter: 2022Q4

REPORT INFORMATION
  Report Type: Spontaneous
  Country: RU (occurrence: None)
  Receive Date: 20221017
  Receipt Date: 20221017
  Transmission Date: 20230113
  Serious: Yes (Other)
  Sender: FDA-Public Use
  Company Number: RU-ROCHE-3198057

PATIENT

DRUGS (1)
  1. EMICIZUMAB [Suspect]
     Active Substance: EMICIZUMAB
     Indication: Factor VIII deficiency
     Route: 065

REACTIONS (8)
  - Haemarthrosis [Unknown]
  - Eyelid contusion [Unknown]
  - Contusion [Unknown]
  - Wound [Unknown]
  - Haemorrhage [Unknown]
  - Head injury [Unknown]
  - Limb injury [Unknown]
  - Fall [Unknown]
